FAERS Safety Report 8335675 (Version 2)
Quarter: 2014Q2

REPORT INFORMATION
  Report Type: Spontaneous
  Country: US (occurrence: None)
  Receive Date: 20111201
  Receipt Date: 20140604
  Transmission Date: 20141212
  Serious: Yes (Hospitalization)
  Sender: FDA-Public Use
  Company Number: 20110824CINRY2217

PATIENT
  Age: 40 Year
  Sex: Female

DRUGS (3)
  1. CINRYZE [Suspect]
     Indication: HEREDITARY ANGIOEDEMA
     Dosage: UNKNOWN (EVERY 3 TO 4 DAYS), INTRAVENOUS
     Route: 042
  2. CINRYZE [Suspect]
     Indication: PROPHYLAXIS
     Dosage: UNKNOWN (EVERY 3 TO 4 DAYS), INTRAVENOUS
     Route: 042
  3. KALBITOR [Concomitant]

REACTIONS (5)
  - Hereditary angioedema [None]
  - Abdominal pain upper [None]
  - Abdominal mass [None]
  - Gastric cyst [None]
  - Bradycardia [None]
